FAERS Safety Report 7029199-8 (Version None)
Quarter: 2010Q4

REPORT INFORMATION
  Report Type: 
  Country: None (occurrence: None)
  Receive Date: 20101005
  Receipt Date: 20100923
  Transmission Date: 20110411
  Serious: Yes (Other)
  Sender: FDA-Public Use
  Company Number: US-SANOFI-AVENTIS-2010SA058141

PATIENT
  Age: 83 Year
  Sex: Female

DRUGS (2)
  1. PLAVIX [Suspect]
     Indication: STENT PLACEMENT
     Route: 048
     Dates: start: 20040101, end: 20050101
  2. PLAVIX [Suspect]
     Route: 048
     Dates: start: 20100801, end: 20100901

REACTIONS (2)
  - AGGRESSION [None]
  - PSYCHOTIC DISORDER [None]
